FAERS Safety Report 9710878 (Version 2)
Quarter: 2013Q4

REPORT INFORMATION
  Report Type: Spontaneous
  Country: US (occurrence: US)
  Receive Date: 20131126
  Receipt Date: 20131126
  Transmission Date: 20140711
  Serious: No
  Sender: FDA-Public Use
  Company Number: US201205001752

PATIENT
  Age: 62 Year
  Sex: Male

DRUGS (5)
  1. BYDUREON 2MG VIAL + SYRINGE [Suspect]
     Indication: TYPE 2 DIABETES MELLITUS
     Dosage: LOT NO:73229 EXPDT:FEB2016
     Route: 058
  2. BYETTA PEN DISPOSABLE [Suspect]
     Indication: TYPE 2 DIABETES MELLITUS
     Dosage: TREATMENT STARTED ON MAR12 OR APR12
     Route: 058
     Dates: start: 2012
  3. EXENATIDE UNK STRENGTH PEN, DISPOSABLE DEVICE [Concomitant]
  4. METFORMIN [Concomitant]
     Indication: TYPE 2 DIABETES MELLITUS
     Route: 048
  5. GLYBURIDE [Concomitant]
     Indication: TYPE 2 DIABETES MELLITUS
     Route: 048

REACTIONS (4)
  - Injection site nodule [Unknown]
  - Injection site pain [Recovered/Resolved]
  - Injection site extravasation [Unknown]
  - Injection site haemorrhage [Unknown]
